FAERS Safety Report 9115201 (Version 1)
Quarter: 2013Q1

REPORT INFORMATION
  Report Type: Spontaneous
  Country: US (occurrence: None)
  Receive Date: 20130128
  Receipt Date: 20130128
  Transmission Date: 20140127
  Serious: Yes (Hospitalization)
  Sender: FDA-Public Use
  Company Number: FK201300121

PATIENT
  Age: 92 Year
  Sex: Female

DRUGS (2)
  1. LIDOCAINE (MANUFACTURER UNKNOWN) (LIDOCAINE) (LIDOCAINE) [Suspect]
     Indication: PRODUCT USED FOR UNKNOWN INDICATION
     Route: 014
     Dates: start: 20090819, end: 20090819
  2. CORTISONE (CORTISONE) [Suspect]
     Indication: PRODUCT USED FOR UNKNOWN INDICATION
     Route: 014
     Dates: start: 20090819, end: 20090819

REACTIONS (5)
  - Back pain [None]
  - Gait disturbance [None]
  - Postural reflex impairment [None]
  - Dysstasia [None]
  - Wrong technique in drug usage process [None]
